FAERS Safety Report 8134890-6 (Version None)
Quarter: 2012Q1

REPORT INFORMATION
  Report Type: 
  Country: None (occurrence: None)
  Receive Date: 20120214
  Receipt Date: 20120207
  Transmission Date: 20120608
  Serious: Yes (Other)
  Sender: FDA-Public Use
  Company Number: US-VERTEX PHARMACEUTICALS INC.-AE-2011-002367

PATIENT
  Sex: Male
  Weight: 102.15 kg

DRUGS (12)
  1. VITAMIN B COMPLEX CAP [Concomitant]
     Route: 048
  2. ASCORBIC ACID [Concomitant]
     Route: 048
  3. TETRACYCLINE HYDROCHLORIDE [Concomitant]
     Route: 048
  4. PHENERGAN [Concomitant]
     Route: 048
  5. FISH OIL [Concomitant]
     Route: 048
  6. INCIVEK [Suspect]
     Indication: HEPATITIS C
     Route: 048
     Dates: start: 20111004
  7. RIBAVIRIN [Concomitant]
     Indication: HEPATITIS C
     Route: 048
     Dates: start: 20111004
  8. MILK THISTLE [Concomitant]
     Route: 048
  9. TRAMADOL HCL [Concomitant]
     Route: 048
  10. VITAMIN D [Concomitant]
     Route: 048
  11. PEGINTERFERON ALFA-2B [Concomitant]
     Indication: HEPATITIS C
     Dates: start: 20111004
  12. VITAMIN E [Concomitant]
     Route: 048

REACTIONS (15)
  - ANXIETY [None]
  - INAPPROPRIATE SCHEDULE OF DRUG ADMINISTRATION [None]
  - BLISTER [None]
  - DIZZINESS [None]
  - ASTHENIA [None]
  - DRUG DOSE OMISSION [None]
  - RASH [None]
  - HEART RATE INCREASED [None]
  - CONSTIPATION [None]
  - INSOMNIA [None]
  - ORAL FUNGAL INFECTION [None]
  - FEELING ABNORMAL [None]
  - DEPRESSION [None]
  - PANCYTOPENIA [None]
  - DYSPNOEA [None]
